FAERS Safety Report 5308967-4 (Version None)
Quarter: 2007Q2

REPORT INFORMATION
  Report Type: 
  Country: None (occurrence: None)
  Receive Date: 20070426
  Receipt Date: 20070423
  Transmission Date: 20071010
  Serious: Yes (Other)
  Sender: FDA-Public Use
  Company Number: US-BOEHRINGER INGELHEIM PHARMACEUTICALS, INC.-2007-BP-05089PF

PATIENT
  Sex: Female

DRUGS (2)
  1. SPIRIVA [Suspect]
     Indication: CHRONIC OBSTRUCTIVE PULMONARY DISEASE
     Route: 055
     Dates: start: 20070119
  2. CHANTIX [Suspect]
     Indication: SMOKING CESSATION THERAPY
     Dates: end: 20070406

REACTIONS (5)
  - ANAL HAEMORRHAGE [None]
  - CHEST PAIN [None]
  - GASTROOESOPHAGEAL REFLUX DISEASE [None]
  - MALAISE [None]
  - NICOTINE DEPENDENCE [None]
